FAERS Safety Report 5618466-8 (Version None)
Quarter: 2008Q1

REPORT INFORMATION
  Report Type: 
  Country: None (occurrence: None)
  Receive Date: 20080207
  Receipt Date: 20080205
  Transmission Date: 20080703
  Serious: Yes (Hospitalization)
  Sender: FDA-Public Use
  Company Number: A0707490A

PATIENT
  Sex: Female

DRUGS (2)
  1. AVANDIA [Suspect]
     Route: 048
     Dates: end: 20080104
  2. UNKNOWN [Concomitant]

REACTIONS (4)
  - ATRIOVENTRICULAR BLOCK [None]
  - BACK PAIN [None]
  - PAIN IN EXTREMITY [None]
  - RENAL PAIN [None]
